FAERS Safety Report 24642993 (Version 1)
Quarter: 2024Q4

REPORT INFORMATION
  Report Type: Report from Study
  Country: KR (occurrence: KR)
  Receive Date: 20241120
  Receipt Date: 20241120
  Transmission Date: 20250115
  Serious: Yes (Other)
  Sender: ALEXION PHARMACEUTICALS
  Company Number: KR-AstraZeneca-2023A228190

PATIENT
  Age: 68 Year
  Weight: 57 kg

DRUGS (80)
  1. DURVALUMAB [Suspect]
     Active Substance: DURVALUMAB
     Indication: Lung neoplasm malignant
     Dosage: 570 MILLIGRAM, UNK
  2. DURVALUMAB [Suspect]
     Active Substance: DURVALUMAB
     Dosage: 570 MILLIGRAM, UNK
  3. DURVALUMAB [Suspect]
     Active Substance: DURVALUMAB
     Dosage: 570 MILLIGRAM, UNK
  4. DURVALUMAB [Suspect]
     Active Substance: DURVALUMAB
     Dosage: 570 MILLIGRAM, UNK
  5. DURVALUMAB [Suspect]
     Active Substance: DURVALUMAB
     Dosage: 570 MILLIGRAM, UNK
  6. DURVALUMAB [Suspect]
     Active Substance: DURVALUMAB
     Dosage: 570 MILLIGRAM, UNK
  7. DURVALUMAB [Suspect]
     Active Substance: DURVALUMAB
     Dosage: 570 MILLIGRAM, UNK
  8. DURVALUMAB [Suspect]
     Active Substance: DURVALUMAB
     Dosage: 570 MILLIGRAM, UNK
  9. DURVALUMAB [Suspect]
     Active Substance: DURVALUMAB
     Dosage: 570 MILLIGRAM, UNK
  10. DURVALUMAB [Suspect]
     Active Substance: DURVALUMAB
     Dosage: 570 MILLIGRAM, UNK
  11. DURVALUMAB [Suspect]
     Active Substance: DURVALUMAB
     Dosage: 570 MILLIGRAM, UNK
  12. DURVALUMAB [Suspect]
     Active Substance: DURVALUMAB
     Dosage: 570 MILLIGRAM, UNK
  13. DURVALUMAB [Suspect]
     Active Substance: DURVALUMAB
     Dosage: 570 MILLIGRAM, UNK
  14. DURVALUMAB [Suspect]
     Active Substance: DURVALUMAB
     Dosage: 570 MILLIGRAM, UNK
  15. DURVALUMAB [Suspect]
     Active Substance: DURVALUMAB
     Dosage: 570 MILLIGRAM, UNK
  16. DURVALUMAB [Suspect]
     Active Substance: DURVALUMAB
     Dosage: 570 MILLIGRAM, UNK
  17. DURVALUMAB [Suspect]
     Active Substance: DURVALUMAB
     Dosage: 570 MILLIGRAM, UNK
  18. DURVALUMAB [Suspect]
     Active Substance: DURVALUMAB
     Dosage: 570 MILLIGRAM, UNK
  19. DURVALUMAB [Suspect]
     Active Substance: DURVALUMAB
     Dosage: 570 MILLIGRAM, UNK
  20. DURVALUMAB [Suspect]
     Active Substance: DURVALUMAB
     Dosage: 570 MILLIGRAM, UNK
  21. DURVALUMAB [Suspect]
     Active Substance: DURVALUMAB
     Dosage: 570 MILLIGRAM, UNK
  22. DURVALUMAB [Suspect]
     Active Substance: DURVALUMAB
     Dosage: 570 MILLIGRAM, UNK
  23. DURVALUMAB [Suspect]
     Active Substance: DURVALUMAB
     Dosage: 570 MILLIGRAM, UNK
  24. DURVALUMAB [Suspect]
     Active Substance: DURVALUMAB
     Dosage: 570 MILLIGRAM, UNK
  25. DURVALUMAB [Suspect]
     Active Substance: DURVALUMAB
     Dosage: 570 MILLIGRAM, UNK
  26. DURVALUMAB [Suspect]
     Active Substance: DURVALUMAB
     Dosage: 570 MILLIGRAM, UNK
  27. DURVALUMAB [Suspect]
     Active Substance: DURVALUMAB
     Dosage: 570 MILLIGRAM, UNK
  28. DURVALUMAB [Suspect]
     Active Substance: DURVALUMAB
     Dosage: 570 MILLIGRAM, UNK
  29. DURVALUMAB [Suspect]
     Active Substance: DURVALUMAB
     Dosage: 570 MILLIGRAM, UNK
  30. DURVALUMAB [Suspect]
     Active Substance: DURVALUMAB
     Dosage: 570 MILLIGRAM, UNK
  31. DURVALUMAB [Suspect]
     Active Substance: DURVALUMAB
     Dosage: 570 MILLIGRAM, UNK
  32. DURVALUMAB [Suspect]
     Active Substance: DURVALUMAB
     Dosage: 570 MILLIGRAM, UNK
  33. DURVALUMAB [Suspect]
     Active Substance: DURVALUMAB
     Dosage: 570 MILLIGRAM, UNK
  34. DURVALUMAB [Suspect]
     Active Substance: DURVALUMAB
     Dosage: 570 MILLIGRAM, UNK
  35. DURVALUMAB [Suspect]
     Active Substance: DURVALUMAB
     Dosage: 570 MILLIGRAM, UNK
  36. DURVALUMAB [Suspect]
     Active Substance: DURVALUMAB
     Dosage: 570 MILLIGRAM, UNK
  37. DURVALUMAB [Suspect]
     Active Substance: DURVALUMAB
     Dosage: 570 MILLIGRAM, UNK
  38. DURVALUMAB [Suspect]
     Active Substance: DURVALUMAB
     Dosage: 570 MILLIGRAM, UNK
  39. DURVALUMAB [Suspect]
     Active Substance: DURVALUMAB
     Dosage: 570 MILLIGRAM, UNK
  40. DURVALUMAB [Suspect]
     Active Substance: DURVALUMAB
     Dosage: 570 MILLIGRAM, UNK
  41. DURVALUMAB [Suspect]
     Active Substance: DURVALUMAB
     Dosage: 570 MILLIGRAM, UNK
  42. DURVALUMAB [Suspect]
     Active Substance: DURVALUMAB
     Dosage: 570 MILLIGRAM, UNK
  43. DURVALUMAB [Suspect]
     Active Substance: DURVALUMAB
     Dosage: 570 MILLIGRAM, UNK
  44. DURVALUMAB [Suspect]
     Active Substance: DURVALUMAB
     Dosage: 570 MILLIGRAM, UNK
  45. DURVALUMAB [Suspect]
     Active Substance: DURVALUMAB
     Dosage: 570 MILLIGRAM, UNK
  46. DURVALUMAB [Suspect]
     Active Substance: DURVALUMAB
     Dosage: 570 MILLIGRAM, UNK
  47. DURVALUMAB [Suspect]
     Active Substance: DURVALUMAB
     Dosage: 570 MILLIGRAM, UNK
  48. DURVALUMAB [Suspect]
     Active Substance: DURVALUMAB
     Dosage: 570 MILLIGRAM, UNK
  49. DURVALUMAB [Suspect]
     Active Substance: DURVALUMAB
     Dosage: 570 MILLIGRAM, UNK
  50. DURVALUMAB [Suspect]
     Active Substance: DURVALUMAB
     Dosage: 570 MILLIGRAM, UNK
  51. DURVALUMAB [Suspect]
     Active Substance: DURVALUMAB
     Dosage: 570 MILLIGRAM, UNK
  52. DURVALUMAB [Suspect]
     Active Substance: DURVALUMAB
     Dosage: 570 MILLIGRAM, UNK
  53. DURVALUMAB [Suspect]
     Active Substance: DURVALUMAB
     Dosage: 570 MILLIGRAM, UNK
  54. DURVALUMAB [Suspect]
     Active Substance: DURVALUMAB
     Dosage: 570 MILLIGRAM, UNK
  55. DURVALUMAB [Suspect]
     Active Substance: DURVALUMAB
     Dosage: 570 MILLIGRAM, UNK
  56. DURVALUMAB [Suspect]
     Active Substance: DURVALUMAB
     Dosage: 570 MILLIGRAM, UNK
  57. DURVALUMAB [Suspect]
     Active Substance: DURVALUMAB
     Dosage: 570 MILLIGRAM, UNK
  58. DURVALUMAB [Suspect]
     Active Substance: DURVALUMAB
     Dosage: 570 MILLIGRAM, UNK
  59. DURVALUMAB [Suspect]
     Active Substance: DURVALUMAB
     Dosage: 570 MILLIGRAM, UNK
  60. DURVALUMAB [Suspect]
     Active Substance: DURVALUMAB
     Dosage: 570 MILLIGRAM, UNK
  61. Lamina [Concomitant]
     Indication: Prophylaxis
     Dosage: 20 MILLILITER
  62. Lamina [Concomitant]
     Dosage: 20 MILLILITER
     Route: 065
  63. FOTAGEL [Concomitant]
     Indication: Diarrhoea
     Dosage: 20 MILLILITER
  64. FOTAGEL [Concomitant]
     Dosage: 20 MILLILITER
     Route: 065
  65. CHOLINE ALFOSCERATE [Concomitant]
     Active Substance: CHOLINE ALFOSCERATE
     Dosage: UNK
  66. CHOLINE ALFOSCERATE [Concomitant]
     Active Substance: CHOLINE ALFOSCERATE
     Dosage: UNK
     Route: 065
  67. ENCOVER [Concomitant]
     Indication: Decreased appetite
     Dosage: 200 MILLIGRAM
  68. ENCOVER [Concomitant]
     Dosage: 200 MILLIGRAM
     Route: 065
  69. HARNAL [Concomitant]
     Active Substance: TAMSULOSIN HYDROCHLORIDE
     Indication: Benign prostatic hyperplasia
     Dosage: 0.2 MILLIGRAM
  70. HARNAL [Concomitant]
     Active Substance: TAMSULOSIN HYDROCHLORIDE
     Dosage: 0.2 MILLIGRAM
  71. ALPIUM [Concomitant]
     Indication: Gastritis
     Dosage: 50 MILLIGRAM
  72. ALPIUM [Concomitant]
     Dosage: 50 MILLIGRAM
  73. REBAMIPIDE [Concomitant]
     Active Substance: REBAMIPIDE
     Indication: Gastritis
     Dosage: 100 MILLIGRAM
  74. REBAMIPIDE [Concomitant]
     Active Substance: REBAMIPIDE
     Dosage: 100 MILLIGRAM
  75. TRIMETAZIDINE DIHYDROCHLORIDE [Concomitant]
     Active Substance: TRIMETAZIDINE DIHYDROCHLORIDE
     Indication: Hypertension
     Dosage: 5 MILLIGRAM
  76. TRIMETAZIDINE DIHYDROCHLORIDE [Concomitant]
     Active Substance: TRIMETAZIDINE DIHYDROCHLORIDE
     Dosage: 5 MILLIGRAM
  77. CRESTOR [Concomitant]
     Active Substance: ROSUVASTATIN CALCIUM
     Indication: Hyperlipidaemia
     Dosage: 10 MILLIGRAM
  78. CRESTOR [Concomitant]
     Active Substance: ROSUVASTATIN CALCIUM
     Dosage: 10 MILLIGRAM
  79. XELODA [Concomitant]
     Active Substance: CAPECITABINE
     Indication: Rectal cancer
     Dosage: 500 MILLIGRAM
  80. XELODA [Concomitant]
     Active Substance: CAPECITABINE
     Dosage: 500 MILLIGRAM

REACTIONS (1)
  - Infectious pleural effusion [Recovered/Resolved]
